FAERS Safety Report 6270949-6 (Version None)
Quarter: 2009Q3

REPORT INFORMATION
  Report Type: 
  Country: None (occurrence: None)
  Receive Date: 20090716
  Receipt Date: 20090702
  Transmission Date: 20100115
  Serious: Yes (Hospitalization, Other)
  Sender: FDA-Public Use
  Company Number: US-ELI_LILLY_AND_COMPANY-US200904003903

PATIENT
  Sex: Female

DRUGS (4)
  1. CYMBALTA [Suspect]
     Indication: BIPOLAR DISORDER
     Dosage: 1 D/F, UNK
     Route: 048
  2. CYMBALTA [Suspect]
     Dosage: 1 D/F, UNK
     Route: 048
  3. TRAZODONE [Concomitant]
     Dates: end: 20080601
  4. XANAX [Concomitant]
     Dosage: 1 D/F, AS NEEDED
     Dates: end: 20080601

REACTIONS (10)
  - CONVULSION [None]
  - FALL [None]
  - GAIT DISTURBANCE [None]
  - HOSPITALISATION [None]
  - LYME DISEASE [None]
  - MEMORY IMPAIRMENT [None]
  - MULTIPLE SCLEROSIS [None]
  - RHEUMATOID ARTHRITIS [None]
  - SPEECH DISORDER [None]
  - URINARY INCONTINENCE [None]
